FAERS Safety Report 10094861 (Version 1)
Quarter: 2014Q2

REPORT INFORMATION
  Report Type: Spontaneous
  Country: TR (occurrence: None)
  Receive Date: 20140418
  Receipt Date: 20140418
  Transmission Date: 20141212
  Serious: Yes (Other)
  Sender: FDA-Public Use
  Company Number: 2291835

PATIENT
  Age: 59 Year
  Sex: Male
  Weight: 80 kg

DRUGS (2)
  1. PACLITAXEL [Suspect]
     Indication: PRODUCT USED FOR UNKNOWN INDICATION
  2. TAXOL [Suspect]
     Indication: LUNG NEOPLASM MALIGNANT
     Dosage: 380 MG MILLIGRAMS, 1 DAY, IN TRAVENOUS (NOT OTHERWISE SPECFIED)?
     Route: 042
     Dates: start: 20140320, end: 20140320

REACTIONS (3)
  - Bronchospasm [None]
  - Respiratory distress [None]
  - Flushing [None]
